FAERS Safety Report 4814159-5 (Version None)
Quarter: 2005Q4

REPORT INFORMATION
  Report Type: 
  Country: None (occurrence: None)
  Receive Date: 20051028
  Receipt Date: 20050711
  Transmission Date: 20060501
  Serious: No
  Sender: FDA-Public Use
  Company Number: US-GLAXOSMITHKLINE-A0565915A

PATIENT
  Age: 10 Year
  Sex: Male
  Weight: 60 kg

DRUGS (5)
  1. ADVAIR DISKUS 100/50 [Suspect]
     Indication: ASTHMA
     Route: 055
  2. STRATTERA [Concomitant]
     Dosage: 78MG PER DAY
  3. CLONIDINE [Concomitant]
     Dosage: .3MG PER DAY
  4. SEROQUEL [Concomitant]
     Dosage: 200MG PER DAY
  5. ALBUTEROL [Concomitant]
     Dosage: 2PUFF AS REQUIRED

REACTIONS (1)
  - RASH [None]
